FAERS Safety Report 19620368 (Version 1)
Quarter: 2021Q3

REPORT INFORMATION
  Report Type: Other
  Country: AU (occurrence: AU)
  Receive Date: 20210728
  Receipt Date: 20210728
  Transmission Date: 20211014
  Serious: Yes (Other)
  Sender: FDA-Public Use
  Company Number: AU-ROCHE-2877354

PATIENT

DRUGS (2)
  1. TRASTUZUMAB. [Suspect]
     Active Substance: TRASTUZUMAB
     Indication: HER2 POSITIVE BREAST CANCER
     Route: 065
  2. NERATINIB [Suspect]
     Active Substance: NERATINIB
     Indication: HER2 POSITIVE BREAST CANCER
     Route: 048

REACTIONS (19)
  - Transaminases increased [Unknown]
  - Dehydration [Unknown]
  - Diarrhoea [Unknown]
  - Anaemia [Unknown]
  - Abdominal pain upper [Unknown]
  - Rash [Unknown]
  - Hypokalaemia [Unknown]
  - Blood creatinine increased [Unknown]
  - Nausea [Unknown]
  - Fatigue [Unknown]
  - Headache [Unknown]
  - Vertigo [Unknown]
  - Vomiting [Unknown]
  - Neutropenia [Unknown]
  - Rectal cancer [Unknown]
  - Decreased appetite [Unknown]
  - Glioma [Unknown]
  - Septic shock [Unknown]
  - Abdominal pain [Unknown]
